FAERS Safety Report 13443027 (Version 2)
Quarter: 2018Q3

REPORT INFORMATION
  Report Type: Spontaneous
  Country: US (occurrence: US)
  Receive Date: 20170414
  Receipt Date: 20180731
  Transmission Date: 20181010
  Serious: No
  Sender: FDA-Public Use
  Company Number: US-PFIZER INC-2016508384

PATIENT
  Age: 48 Year
  Sex: Female

DRUGS (17)
  1. CARBAMAZEPINE. [Concomitant]
     Active Substance: CARBAMAZEPINE
     Dosage: 400 MG, 1X/DAY (200 MG TABLET 2 QHS)
     Route: 048
     Dates: start: 20160425
  2. BUPROPION HCL [Concomitant]
     Active Substance: BUPROPION HYDROCHLORIDE
     Dosage: 300 MG, 1X/DAY [IN THE MORNING]
     Route: 048
     Dates: start: 20160620
  3. SYNTHROID [Concomitant]
     Active Substance: LEVOTHYROXINE SODIUM
     Dosage: 100 UG, 1X/DAY  [1 QAM AC]
     Route: 048
  4. TRAMADOL HCL [Concomitant]
     Active Substance: TRAMADOL HYDROCHLORIDE
     Indication: PAIN
     Dosage: 50 MG TABLET, 1/2? 2 QID PRN
     Route: 048
     Dates: start: 20160523
  5. ZOLPIDEM TARTRATE. [Concomitant]
     Active Substance: ZOLPIDEM TARTRATE
     Dosage: 10 MG, 1X/DAY (QHS PRN)
     Route: 048
     Dates: start: 20160329
  6. LYRICA [Suspect]
     Active Substance: PREGABALIN
     Dosage: 300 MG, 2X/DAY
     Route: 048
     Dates: start: 20160712
  7. NITROFURANTOIN MACROCRYSTALS [Concomitant]
     Active Substance: NITROFURANTOIN
     Dosage: 100 MG, 1X/DAY
     Route: 048
  8. ZALEPLON. [Concomitant]
     Active Substance: ZALEPLON
     Dosage: 10 MG TAKE 1 TO 2 CAPSULES AT BEDTIME AS NEEDED
     Dates: start: 20160829
  9. LYRICA [Suspect]
     Active Substance: PREGABALIN
     Dosage: 200 MG, 4X/DAY
     Route: 048
  10. FLOMAX [Concomitant]
     Active Substance: TAMSULOSIN HYDROCHLORIDE
     Dosage: 0.4 MG, UNK
     Route: 048
  11. LAMOTRIGINE. [Concomitant]
     Active Substance: LAMOTRIGINE
     Dosage: 400 MG, 1X/DAY [QHS]
     Route: 048
     Dates: start: 19000101
  12. PROPRANOLOL HCL [Concomitant]
     Active Substance: PROPRANOLOL HYDROCHLORIDE
     Dosage: 40 MG, 2X/DAY
     Route: 048
     Dates: start: 20160510
  13. RIZATRIPTAN BENZOATE. [Concomitant]
     Active Substance: RIZATRIPTAN BENZOATE
     Indication: HEADACHE
     Dosage: 10 MG, AS NEEDED [REPEAT EVERY 2 HOURS AS NEEDED, MAXIMUM 3 TABLETS IN 24 HOURS]
     Route: 048
     Dates: start: 20160510
  14. HYDROCODONE?AETAMINOPHEN [Concomitant]
     Dosage: [HYDROCODONE BITARTRATE 10 MG] [PARACETAMOL 325 MG]
     Route: 048
  15. PROMETHAZINE HCL [Concomitant]
     Active Substance: PROMETHAZINE HYDROCHLORIDE
     Dosage: 25 MG TABLET 1/2? 1 QD PRN
     Route: 048
     Dates: start: 20161006
  16. TOPAMAX [Concomitant]
     Active Substance: TOPIRAMATE
     Dosage: 200 MG, 2X/DAY
     Route: 048
     Dates: start: 20160601
  17. CYCLOBENZAPRINE HCL [Concomitant]
     Active Substance: CYCLOBENZAPRINE HYDROCHLORIDE
     Dosage: UNK, AS NEEDED (10 MG TABLET 1/2?1 TID PRN)
     Route: 048
     Dates: start: 19000101

REACTIONS (3)
  - Anxiety [Unknown]
  - Prescribed overdose [Unknown]
  - Neuralgia [Unknown]
